FAERS Safety Report 16342567 (Version 1)
Quarter: 2019Q2

REPORT INFORMATION
  Report Type: Spontaneous
  Country: IT (occurrence: IT)
  Receive Date: 20190522
  Receipt Date: 20190522
  Transmission Date: 20190711
  Serious: Yes (Other)
  Sender: FDA-Public Use
  Company Number: IT-UCBSA-2019010008

PATIENT
  Age: 31 Year
  Sex: Female

DRUGS (5)
  1. TOPIRAMATE. [Suspect]
     Active Substance: TOPIRAMATE
     Indication: PARTIAL SEIZURES
     Dosage: 200 MG DAILY
     Route: 048
     Dates: start: 20161011
  2. TEGRETOL [Suspect]
     Active Substance: CARBAMAZEPINE
     Indication: PARTIAL SEIZURES
     Dosage: 600 MG DAILY
     Route: 048
     Dates: start: 20160901
  3. ZONEGRAN [Suspect]
     Active Substance: ZONISAMIDE
     Indication: PARTIAL SEIZURES
     Dosage: 400 MG DAILY
     Route: 048
     Dates: end: 20180704
  4. MYSOLINE [Suspect]
     Active Substance: PRIMIDONE
     Indication: PARTIAL SEIZURES
     Dosage: 500 MG DAILY
     Route: 048
     Dates: start: 20180704
  5. LEVETIRACETAM. [Suspect]
     Active Substance: LEVETIRACETAM
     Indication: PARTIAL SEIZURES
     Dosage: 300 MG DAILY
     Route: 048
     Dates: end: 20161011

REACTIONS (2)
  - Drug resistance [Not Recovered/Not Resolved]
  - Epilepsy [Not Recovered/Not Resolved]

NARRATIVE: CASE EVENT DATE: 20190211
